FAERS Safety Report 11226705 (Version 1)
Quarter: 2015Q2

REPORT INFORMATION
  Report Type: Spontaneous
  Country: US (occurrence: US)
  Receive Date: 20150630
  Receipt Date: 20150630
  Transmission Date: 20150821
  Serious: No
  Sender: FDA-Public Use
  Company Number: US-SA-2015SA069499

PATIENT
  Age: 63 Year
  Sex: Female

DRUGS (2)
  1. AUBAGIO [Suspect]
     Active Substance: TERIFLUNOMIDE
     Indication: MULTIPLE SCLEROSIS
     Route: 048
     Dates: start: 201309, end: 201404
  2. PLEGRIDY [Suspect]
     Active Substance: PEGINTERFERON BETA-1A
     Route: 065
     Dates: start: 20150422

REACTIONS (7)
  - Headache [Unknown]
  - Chills [Unknown]
  - Flushing [Unknown]
  - Influenza like illness [Unknown]
  - Muscle spasms [Unknown]
  - Anxiety [Unknown]
  - Burning sensation [Unknown]

NARRATIVE: CASE EVENT DATE: 20150422
